FAERS Safety Report 4753907-X (Version None)
Quarter: 2005Q3

REPORT INFORMATION
  Report Type: 
  Country: None (occurrence: None)
  Receive Date: 20050825
  Receipt Date: 20050811
  Transmission Date: 20060218
  Serious: Yes (Hospitalization)
  Sender: FDA-Public Use
  Company Number: 2005BI002195

PATIENT
  Age: 51 Year
  Sex: Female

DRUGS (7)
  1. AVONEX [Suspect]
     Indication: MULTIPLE SCLEROSIS
     Dosage: 30 UG;QW; IM
     Route: 030
     Dates: start: 20020207
  2. AVONEX [Suspect]
     Indication: MULTIPLE SCLEROSIS
     Dosage: 30 UG;QW; IM
     Route: 030
  3. PREMARIN [Concomitant]
  4. BUSPAR [Concomitant]
  5. CLONOPIN [Concomitant]
  6. PLAQUENIL [Concomitant]
  7. ZANAFLEX [Concomitant]

REACTIONS (3)
  - HYPERTENSION [None]
  - TOBACCO USER [None]
  - TRANSIENT ISCHAEMIC ATTACK [None]
